FAERS Safety Report 14241544 (Version 2)
Quarter: 2020Q1

REPORT INFORMATION
  Report Type: Spontaneous
  Country: MX (occurrence: MX)
  Receive Date: 20171201
  Receipt Date: 20200214
  Transmission Date: 20200409
  Serious: Yes (Other)
  Sender: FDA-Public Use
  Company Number: MX-ROCHE-1578272

PATIENT
  Age: 64 Year
  Sex: Male
  Weight: 87.6 kg

DRUGS (11)
  1. XELODA [Suspect]
     Active Substance: CAPECITABINE
     Indication: COLON CANCER
     Dosage: CYCLE OF 14 DAYS (3-2-0)
     Route: 048
     Dates: start: 20150102, end: 2016
  2. LORATADINE. [Concomitant]
     Active Substance: LORATADINE
     Route: 048
     Dates: start: 20150425
  3. AVASTIN [Suspect]
     Active Substance: BEVACIZUMAB
     Indication: COLON CANCER
     Route: 065
     Dates: start: 20150425, end: 201509
  4. OMEPRAZOLE. [Concomitant]
     Active Substance: OMEPRAZOLE
     Route: 065
     Dates: start: 20150425
  5. METHYLPREDNISOLONE. [Concomitant]
     Active Substance: METHYLPREDNISOLONE
     Route: 065
     Dates: start: 20150425
  6. METOCLOPRAMIDE. [Concomitant]
     Active Substance: METOCLOPRAMIDE
     Route: 065
     Dates: start: 20150425
  7. OXALIPLATIN. [Suspect]
     Active Substance: OXALIPLATIN
     Indication: COLON CANCER
     Route: 065
     Dates: start: 20150425
  8. ONDANSETRON [Concomitant]
     Active Substance: ONDANSETRON
     Dosage: ONE DAILY OR TWICE PER DAY
     Route: 048
     Dates: start: 20150426, end: 20150506
  9. DIPHENHYDRAMINE. [Concomitant]
     Active Substance: DIPHENHYDRAMINE
     Dosage: 1 PACKAGE
     Route: 048
     Dates: start: 20150425
  10. ACETAMINOPHEN. [Concomitant]
     Active Substance: ACETAMINOPHEN
     Dosage: 2 PACKAGES
     Route: 065
     Dates: end: 20150425
  11. PALONOSETRON. [Concomitant]
     Active Substance: PALONOSETRON HYDROCHLORIDE
     Indication: COLON CANCER
     Route: 065
     Dates: start: 20150425

REACTIONS (20)
  - Lip discolouration [Recovered/Resolved]
  - Oral discomfort [Recovered/Resolved]
  - Muscular weakness [Recovered/Resolved]
  - Palmar-plantar erythrodysaesthesia syndrome [Recovered/Resolved]
  - Blood glucose increased [Recovered/Resolved]
  - Headache [Recovered/Resolved]
  - Throat irritation [Recovered/Resolved]
  - Gastrointestinal inflammation [Recovered/Resolved]
  - Influenza [Recovered/Resolved]
  - Tongue disorder [Recovered/Resolved]
  - Blood pressure increased [Unknown]
  - Amoebiasis [Recovered/Resolved]
  - Throat tightness [Recovered/Resolved]
  - Pollakiuria [Recovered/Resolved]
  - Diarrhoea [Recovered/Resolved]
  - Dyspepsia [Recovered/Resolved]
  - Blood pressure increased [Recovered/Resolved]
  - Fatigue [Recovered/Resolved]
  - Tongue disorder [Recovered/Resolved]
  - Sweat gland infection [Recovered/Resolved]

NARRATIVE: CASE EVENT DATE: 20150425
